FAERS Safety Report 19959299 (Version 1)
Quarter: 2021Q4

REPORT INFORMATION
  Report Type: Spontaneous
  Country: US (occurrence: US)
  Receive Date: 20211014
  Receipt Date: 20211014
  Transmission Date: 20220303
  Serious: Yes (Life-Threatening)
  Sender: FDA-Public Use
  Company Number: None

PATIENT
  Age: 84 Year
  Sex: Female
  Weight: 74.1 kg

DRUGS (15)
  1. VOTRIENT [Suspect]
     Active Substance: PAZOPANIB HYDROCHLORIDE
     Indication: Soft tissue sarcoma
     Route: 048
     Dates: start: 20210716
  2. VOTRIENT [Suspect]
     Active Substance: PAZOPANIB HYDROCHLORIDE
     Indication: Bone cancer
  3. ACETAMINOPHEN [Concomitant]
     Active Substance: ACETAMINOPHEN
  4. ATORVASTATIN [Concomitant]
     Active Substance: ATORVASTATIN
  5. CITALOPRAM [Concomitant]
     Active Substance: CITALOPRAM HYDROBROMIDE
  6. ELIQUIS [Concomitant]
     Active Substance: APIXABAN
  7. FLUTICASONE [Concomitant]
     Active Substance: FLUTICASONE
  8. FUROSEMIDE [Concomitant]
     Active Substance: FUROSEMIDE
  9. GABAPENTIN [Concomitant]
     Active Substance: GABAPENTIN
  10. levemir pen [Concomitant]
  11. HUMALOG PEN [Concomitant]
     Active Substance: INSULIN LISPRO
  12. LOPRESSOR [Concomitant]
     Active Substance: METOPROLOL TARTRATE
  13. MS CONTIN [Concomitant]
     Active Substance: MORPHINE SULFATE
  14. OMEPRAZOLE [Concomitant]
     Active Substance: OMEPRAZOLE
  15. potassium 10 mEq [Concomitant]

REACTIONS (2)
  - Liver function test increased [None]
  - Drug ineffective [None]

NARRATIVE: CASE EVENT DATE: 20211014
